FAERS Safety Report 25976682 (Version 1)
Quarter: 2025Q4

REPORT INFORMATION
  Report Type: Spontaneous
  Country: US (occurrence: US)
  Receive Date: 20251029
  Receipt Date: 20251029
  Transmission Date: 20260117
  Serious: No
  Sender: MERCK SHARP & DOHME LLC
  Company Number: US-009507513-2342842

PATIENT
  Sex: Female

DRUGS (2)
  1. SITAGLIPTIN PHOSPHATE [Suspect]
     Active Substance: SITAGLIPTIN PHOSPHATE
     Dosage: 100MG ONCE PER DAY, REDUCING TO 50MG ONCE PER DAY
     Route: 048
  2. SITAGLIPTIN PHOSPHATE [Suspect]
     Active Substance: SITAGLIPTIN PHOSPHATE
     Dosage: 100MG ONCE PER DAY, REDUCING TO 50MG ONCE PER DAY
     Route: 048

REACTIONS (1)
  - Hypotension [Unknown]
